FAERS Safety Report 17646651 (Version 1)
Quarter: 2020Q2

REPORT INFORMATION
  Report Type: Spontaneous
  Country: US (occurrence: US)
  Receive Date: 20200408
  Receipt Date: 20200408
  Transmission Date: 20200713
  Serious: No
  Sender: FDA-Public Use
  Company Number: US-VERTEX PHARMACEUTICALS-2020-007950

PATIENT
  Sex: Male
  Weight: 77 kg

DRUGS (1)
  1. TRIKAFTA [Suspect]
     Active Substance: ELEXACAFTOR\IVACAFTOR\TEZACAFTOR
     Indication: CYSTIC FIBROSIS
     Dosage: 2 TABLETS(100MG ELEXACAFTOR/50MG TEZACAFTOR/150MG IVACAFTOR) AM  AND 1 TABLET (150MG IVACAFTOR) PM
     Route: 048
     Dates: start: 201911

REACTIONS (1)
  - Sputum increased [Unknown]
